FAERS Safety Report 4892755-7 (Version None)
Quarter: 2005Q4

REPORT INFORMATION
  Report Type: 
  Country: None (occurrence: None)
  Receive Date: 20051220
  Receipt Date: 20051003
  Transmission Date: 20060501
  Serious: Yes (Other)
  Sender: FDA-Public Use
  Company Number: 420036

PATIENT
  Age: 54 Year
  Sex: Female
  Weight: 45.4 kg

DRUGS (3)
  1. BONIVA [Suspect]
     Indication: OSTEOPOROSIS
     Dosage: 150 MG 1 PER MONTH ORAL
     Route: 048
     Dates: start: 20050927, end: 20050928
  2. NEXIUM [Concomitant]
  3. HERBAL EXTRACTS NOS (BOTANICAL NOS) [Concomitant]

REACTIONS (7)
  - BONE PAIN [None]
  - CHEST PAIN [None]
  - FATIGUE [None]
  - HEART RATE INCREASED [None]
  - MYALGIA [None]
  - PAIN [None]
  - PYREXIA [None]
